FAERS Safety Report 7744470-X (Version None)
Quarter: 2011Q3

REPORT INFORMATION
  Report Type: 
  Country: None (occurrence: None)
  Receive Date: 20110912
  Receipt Date: 20110831
  Transmission Date: 20111222
  Serious: Yes (Other)
  Sender: FDA-Public Use
  Company Number: CHPA2011US12106

PATIENT
  Age: 69 Year
  Sex: Female

DRUGS (1)
  1. BENEFIBER SUGAR FREE [Suspect]
     Indication: NUTRITIONAL SUPPORT
     Dosage: 3 DF, TID
     Route: 048
     Dates: start: 20110401

REACTIONS (4)
  - FEELING ABNORMAL [None]
  - TOOTH INJURY [None]
  - TOOTH EXTRACTION [None]
  - DENTURE WEARER [None]
